FAERS Safety Report 7864587-9 (Version None)
Quarter: 2011Q4

REPORT INFORMATION
  Report Type: 
  Country: None (occurrence: None)
  Receive Date: 20111028
  Receipt Date: 20101021
  Transmission Date: 20120403
  Serious: No
  Sender: FDA-Public Use
  Company Number: US-GLAXOSMITHKLINE-A0888965A

PATIENT
  Age: 47 Year
  Sex: Female
  Weight: 63.6 kg

DRUGS (7)
  1. ROCEPHIN [Concomitant]
     Indication: LYME DISEASE
     Dosage: 2MG THREE TIMES PER WEEK
     Route: 042
  2. VITAMIN B-12 [Concomitant]
     Dosage: 1INJ MONTHLY
  3. SYNTHROID [Concomitant]
     Indication: HYPOTHYROIDISM
     Dosage: .125MCG PER DAY
  4. MAXALT [Concomitant]
     Indication: MIGRAINE
     Dosage: 10MG AS REQUIRED
  5. POTASSIUM [Concomitant]
     Indication: BLOOD POTASSIUM DECREASED
     Dosage: 10MEQ THREE TIMES PER WEEK
     Route: 042
  6. UNSPECIFIED MEDICATION [Concomitant]
     Indication: HYPERCHLORHYDRIA
     Dosage: 60MGD PER DAY
  7. SUMATRIPTAN SUCCINATE [Suspect]
     Indication: MIGRAINE
     Dosage: 20MG AS REQUIRED
     Route: 045
     Dates: start: 20060101

REACTIONS (2)
  - PRODUCT QUALITY ISSUE [None]
  - DRUG INEFFECTIVE [None]
